FAERS Safety Report 4445857-3 (Version None)
Quarter: 2004Q3

REPORT INFORMATION
  Report Type: 
  Country: None (occurrence: None)
  Receive Date: 20040910
  Receipt Date: 20040901
  Transmission Date: 20050211
  Serious: Yes (Life-Threatening, Hospitalization)
  Sender: FDA-Public Use
  Company Number: DE-JNJFOC-20040805040

PATIENT
  Sex: Male
  Weight: 62 kg

DRUGS (3)
  1. RISPERDAL [Suspect]
     Route: 049
     Dates: start: 20040729
  2. DIAZEPAM [Concomitant]
     Indication: TENSION
     Route: 049
     Dates: start: 20040727
  3. DIAZEPAM [Concomitant]
     Indication: RESTLESSNESS
     Route: 049
     Dates: start: 20040727

REACTIONS (2)
  - LEG AMPUTATION [None]
  - RHABDOMYOLYSIS [None]
